FAERS Safety Report 13011382 (Version 2)
Quarter: 2016Q4

REPORT INFORMATION
  Report Type: Spontaneous
  Country: US (occurrence: US)
  Receive Date: 20161209
  Receipt Date: 20161213
  Transmission Date: 20170207
  Serious: Yes (Other)
  Sender: FDA-Public Use
  Company Number: PHHY2016US166310

PATIENT
  Age: 55 Year
  Sex: Female

DRUGS (10)
  1. TACROLIMUS. [Suspect]
     Active Substance: TACROLIMUS
     Indication: LUNG TRANSPLANT
  2. MYCOPHENOLATE [Suspect]
     Active Substance: MYCOPHENOLIC ACID
     Indication: LUNG TRANSPLANT
     Route: 065
  3. MYCOPHENOLATE [Suspect]
     Active Substance: MYCOPHENOLIC ACID
     Indication: IMMUNOSUPPRESSANT DRUG THERAPY
  4. BASILIXIMAB [Suspect]
     Active Substance: BASILIXIMAB
     Indication: IMMUNOSUPPRESSANT DRUG THERAPY
  5. TACROLIMUS. [Suspect]
     Active Substance: TACROLIMUS
     Indication: IMMUNOSUPPRESSANT DRUG THERAPY
     Route: 065
  6. PREDNISONE. [Suspect]
     Active Substance: PREDNISONE
     Indication: LUNG TRANSPLANT
     Route: 065
  7. PREDNISONE. [Suspect]
     Active Substance: PREDNISONE
     Indication: IMMUNOSUPPRESSANT DRUG THERAPY
  8. ACYCLOVIR. [Concomitant]
     Active Substance: ACYCLOVIR
     Indication: EVIDENCE BASED TREATMENT
     Route: 065
  9. CYCLOSERINE. [Concomitant]
     Active Substance: CYCLOSERINE
  10. BASILIXIMAB [Suspect]
     Active Substance: BASILIXIMAB
     Indication: LUNG TRANSPLANT
     Route: 065

REACTIONS (14)
  - Encephalopathy [Recovering/Resolving]
  - Mental status changes [Recovered/Resolved]
  - Confusional state [Unknown]
  - Myoclonus [Unknown]
  - Cogwheel rigidity [Unknown]
  - Impaired driving ability [Unknown]
  - Cognitive disorder [Recovered/Resolved]
  - Decreased activity [Unknown]
  - Speech disorder [Unknown]
  - Gait disturbance [Unknown]
  - JC virus infection [Recovering/Resolving]
  - Product use issue [Unknown]
  - Hyperreflexia [Recovered/Resolved]
  - Balance disorder [Recovering/Resolving]
